FAERS Safety Report 18706208 (Version 1)
Quarter: 2021Q1

REPORT INFORMATION
  Report Type: Spontaneous
  Country: US (occurrence: US)
  Receive Date: 20210105
  Receipt Date: 20210105
  Transmission Date: 20210419
  Serious: Yes (Death)
  Sender: FDA-Public Use
  Company Number: None

PATIENT
  Age: 71 Year
  Sex: Female

DRUGS (10)
  1. CARVEDILOL. [Concomitant]
     Active Substance: CARVEDILOL
  2. GLUCOSAMINE [Concomitant]
     Active Substance: GLUCOSAMINE
  3. LOSART/HCTZ [Concomitant]
  4. ELIQUIS [Concomitant]
     Active Substance: APIXABAN
  5. FUROSEMIDE. [Concomitant]
     Active Substance: FUROSEMIDE
  6. SIMVASTATIN. [Concomitant]
     Active Substance: SIMVASTATIN
  7. ESBRIET [Suspect]
     Active Substance: PIRFENIDONE
     Indication: IDIOPATHIC PULMONARY FIBROSIS
     Route: 048
     Dates: start: 20191025
  8. CENTRUM [Concomitant]
     Active Substance: VITAMINS
  9. LEVOTHYROXINE. [Concomitant]
     Active Substance: LEVOTHYROXINE
  10. DIGOX [Concomitant]
     Active Substance: DIGOXIN

REACTIONS (1)
  - Death [None]

NARRATIVE: CASE EVENT DATE: 20201231
